FAERS Safety Report 21018497 (Version 1)
Quarter: 2022Q2

REPORT INFORMATION
  Report Type: Spontaneous
  Country: US (occurrence: None)
  Receive Date: 20220628
  Receipt Date: 20220628
  Transmission Date: 20220720
  Serious: No
  Sender: FDA-Public Use
  Company Number: None

PATIENT
  Sex: Female

DRUGS (1)
  1. VERZENIO [Suspect]
     Active Substance: ABEMACICLIB
     Indication: Breast cancer female
     Dosage: OTHER FREQUENCY : 1 TAB 2X A DAY;?
     Route: 048
     Dates: start: 20220506, end: 20220613

REACTIONS (2)
  - Therapy interrupted [None]
  - Infection [None]
